FAERS Safety Report 9897564 (Version 1)
Quarter: 2014Q1

REPORT INFORMATION
  Report Type: Report from Study
  Country: US (occurrence: US)
  Receive Date: 20140214
  Receipt Date: 20140214
  Transmission Date: 20141002
  Serious: Yes (Hospitalization, Other)
  Sender: FDA-Public Use
  Company Number: US-ALEXION-A201304981

PATIENT
  Sex: Female

DRUGS (2)
  1. SOLIRIS [Suspect]
     Indication: PAROXYSMAL NOCTURNAL HAEMOGLOBINURIA
  2. SOLIRIS [Suspect]

REACTIONS (4)
  - Vomiting [Unknown]
  - Pyrexia [Unknown]
  - Packed red blood cell transfusion [Unknown]
  - Arthropod bite [Unknown]
